FAERS Safety Report 9951580 (Version 1)
Quarter: 2014Q1

REPORT INFORMATION
  Report Type: Spontaneous
  Country: ZA (occurrence: ZA)
  Receive Date: 20140304
  Receipt Date: 20140304
  Transmission Date: 20141002
  Serious: Yes (Death, Other)
  Sender: FDA-Public Use
  Company Number: ZA-SA-2014SA021970

PATIENT
  Age: 75 Year
  Sex: Male

DRUGS (1)
  1. RENAGEL [Suspect]
     Indication: BLOOD PHOSPHORUS INCREASED
     Route: 048
     Dates: start: 201302

REACTIONS (2)
  - Disease progression [Fatal]
  - Cardiac failure [Unknown]
